FAERS Safety Report 6548990-5 (Version None)
Quarter: 2010Q1

REPORT INFORMATION
  Report Type: 
  Country: None (occurrence: None)
  Receive Date: 20100125
  Receipt Date: 20100111
  Transmission Date: 20100710
  Serious: Yes (Life-Threatening, Hospitalization)
  Sender: FDA-Public Use
  Company Number: FR-ORACLE-2010S1000015

PATIENT
  Age: 68 Year
  Sex: Female

DRUGS (3)
  1. CUBICIN [Suspect]
     Indication: ARTHRITIS INFECTIVE
     Dates: end: 20100105
  2. CUBICIN [Suspect]
     Indication: OFF LABEL USE
     Dates: end: 20100105
  3. RIFAMPICIN [Suspect]
     Indication: ARTHRITIS INFECTIVE

REACTIONS (2)
  - EOSINOPHILIC PNEUMONIA [None]
  - RESPIRATORY DISTRESS [None]
